FAERS Safety Report 7234911-9 (Version None)
Quarter: 2011Q1

REPORT INFORMATION
  Report Type: 
  Country: None (occurrence: None)
  Receive Date: 20110120
  Receipt Date: 20110113
  Transmission Date: 20110831
  Serious: Yes (Life-Threatening, Hospitalization)
  Sender: FDA-Public Use
  Company Number: PHHO2010BR03306

PATIENT
  Sex: Male
  Weight: 68 kg

DRUGS (12)
  1. COMPARATOR ENALAPRIL [Suspect]
     Indication: CARDIAC FAILURE
     Dosage: UNK
     Route: 048
     Dates: start: 20091028
  2. SIMVASTATIN [Concomitant]
     Indication: CARDIAC FAILURE
  3. CAPTOPRIL [Concomitant]
     Indication: CARDIAC FAILURE
  4. CARVEDILOL [Concomitant]
  5. EZETIMIBE [Concomitant]
     Indication: CARDIAC FAILURE
  6. DIGOXIN [Concomitant]
     Indication: CARDIAC FAILURE
  7. ALISKIREN [Suspect]
     Indication: CARDIAC FAILURE
     Dosage: UNK
     Route: 048
     Dates: start: 20091028
  8. BLINDED ALISKIREN [Suspect]
     Indication: CARDIAC FAILURE
     Dosage: CODE NOT BROKEN
     Route: 048
     Dates: start: 20100125, end: 20100219
  9. BLINDED ENALAPRIL [Suspect]
     Indication: CARDIAC FAILURE
     Dosage: CODE NOT BROKEN
     Route: 048
     Dates: start: 20100125, end: 20100219
  10. BLINDED NO TREATMENT RECEIVED [Suspect]
     Indication: CARDIAC FAILURE
     Dosage: CODE NOT BROKEN
     Route: 048
     Dates: start: 20100125, end: 20100219
  11. AAS [Concomitant]
  12. SPIRONOLACTONE [Concomitant]
     Indication: CARDIAC FAILURE
     Dosage: UNK
     Dates: start: 20091002, end: 20100220

REACTIONS (6)
  - BLINDNESS UNILATERAL [None]
  - CEREBROVASCULAR ACCIDENT [None]
  - DISEASE PROGRESSION [None]
  - HAEMOLYSIS [None]
  - HYPERKALAEMIA [None]
  - ARRHYTHMIA [None]
